FAERS Safety Report 4933385-8 (Version None)
Quarter: 2006Q1

REPORT INFORMATION
  Report Type: 
  Country: None (occurrence: None)
  Receive Date: 20060306
  Receipt Date: 20051026
  Transmission Date: 20060701
  Serious: Yes (Hospitalization)
  Sender: FDA-Public Use
  Company Number: US-MERCK-0510USA09174

PATIENT
  Age: 68 Year
  Sex: Male
  Weight: 86 kg

DRUGS (8)
  1. VIOXX [Suspect]
     Indication: RHEUMATOID ARTHRITIS
     Route: 048
     Dates: start: 19990719, end: 20010911
  2. METHOTREXATE [Concomitant]
     Indication: RHEUMATOID ARTHRITIS
     Route: 065
     Dates: start: 19850101, end: 19990101
  3. NITROSTAT [Concomitant]
     Route: 065
  4. CLARITIN [Concomitant]
     Route: 065
  5. SINGULAIR [Concomitant]
     Route: 065
  6. ENBREL [Concomitant]
     Indication: RHEUMATOID ARTHRITIS
     Route: 065
  7. ASTELIN [Concomitant]
     Route: 065
  8. INDOCIN [Concomitant]
     Indication: ARTHRITIS
     Route: 065
     Dates: start: 19850101, end: 19990101

REACTIONS (1)
  - MYOCARDIAL INFARCTION [None]
